FAERS Safety Report 22761571 (Version 2)
Quarter: 2024Q2

REPORT INFORMATION
  Report Type: Spontaneous
  Country: US (occurrence: US)
  Receive Date: 20230728
  Receipt Date: 20240424
  Transmission Date: 20240716
  Serious: No
  Sender: FDA-Public Use
  Company Number: US-PFIZER INC-PV202300126788

PATIENT
  Age: 82 Year
  Sex: Female

DRUGS (9)
  1. IBRANCE [Suspect]
     Active Substance: PALBOCICLIB
     Dosage: 100 MG, CYCLIC (FOR 21 DAYS THEN 7 DAYS OFF)
     Route: 048
     Dates: start: 202304
  2. IBRANCE [Suspect]
     Active Substance: PALBOCICLIB
     Dosage: 75 MG, ONCE DAILY DAYS1 TO 21 OF EACH 28 DAY CYCLE
     Route: 048
     Dates: start: 20230427
  3. CRANBERRY [Concomitant]
     Active Substance: CRANBERRY
     Dosage: UNK
  4. ELIQUIS [Concomitant]
     Active Substance: APIXABAN
     Dosage: UNK
  5. LETROZOLE [Concomitant]
     Active Substance: LETROZOLE
     Dosage: UNK
  6. LISINOPRIL [Concomitant]
     Active Substance: LISINOPRIL
     Dosage: UNK
  7. METOPROLOL SUCCINATE [Concomitant]
     Active Substance: METOPROLOL SUCCINATE
     Dosage: UNK
  8. PANTOPRAZOLE [Concomitant]
     Active Substance: PANTOPRAZOLE
     Dosage: UNK
  9. VITAMINS NOS [Concomitant]
     Active Substance: VITAMINS

REACTIONS (4)
  - Nausea [Unknown]
  - Decreased appetite [Unknown]
  - Paraesthesia [Unknown]
  - Taste disorder [Not Recovered/Not Resolved]
